FAERS Safety Report 13122909 (Version 1)
Quarter: 2017Q1

REPORT INFORMATION
  Report Type: Report from Study
  Country: FR (occurrence: FR)
  Receive Date: 20170117
  Receipt Date: 20170117
  Transmission Date: 20170428
  Serious: Yes (Death)
  Sender: FDA-Public Use
  Company Number: FR-PFIZER INC-2017000091

PATIENT

DRUGS (2)
  1. CYTARABINE. [Suspect]
     Active Substance: CYTARABINE
     Indication: ACUTE LEUKAEMIA
     Dosage: HIGH DOSE, 3 G/SQ M/12 HOURS, DURING THE FIRST 2 DAYS
  2. AMSA [Suspect]
     Active Substance: AMSACRINE
     Indication: ACUTE LEUKAEMIA
     Dosage: 90-120 MG/SQ M/DAY FOR 5 DAYS

REACTIONS (1)
  - Bone marrow failure [Fatal]
